FAERS Safety Report 4664759-0 (Version None)
Quarter: 2005Q2

REPORT INFORMATION
  Report Type: 
  Country: None (occurrence: None)
  Receive Date: 20050516
  Receipt Date: 20050511
  Transmission Date: 20051028
  Serious: Yes (Death)
  Sender: FDA-Public Use
  Company Number: 2005-127265-NL

PATIENT
  Age: 60 Year
  Sex: Female

DRUGS (8)
  1. MIRTAZAPINE [Suspect]
     Dosage: DF
  2. KLIOGEST [Suspect]
     Dosage: 1 DF ORAL
     Route: 048
     Dates: start: 19990914, end: 20050125
  3. CARBAMAZEPINE [Suspect]
     Dosage: 200 MG ORAL
     Route: 048
     Dates: start: 20010226, end: 20050125
  4. TIOTROPIUM BROMIDE [Concomitant]
  5. LEVOMEPROMAZINE [Concomitant]
  6. ALPRAZOLAM [Concomitant]
  7. ALBUTEROL SULFATE HFA [Concomitant]
  8. ZOPICLONE [Concomitant]

REACTIONS (2)
  - MALIGNANT URINARY TRACT NEOPLASM [None]
  - PHLEBOTHROMBOSIS [None]
